FAERS Safety Report 8847270 (Version 4)
Quarter: 2013Q1

REPORT INFORMATION
  Report Type: Report from Study
  Country: CA (occurrence: CA)
  Receive Date: 20121018
  Receipt Date: 20130125
  Transmission Date: 20140127
  Serious: Yes (Death, Hospitalization, Other)
  Sender: FDA-Public Use
  Company Number: CA-ROCHE-1137955

PATIENT
  Age: 61 Year
  Sex: Male

DRUGS (5)
  1. ZELBORAF [Suspect]
     Indication: METASTATIC MALIGNANT MELANOMA
     Route: 048
     Dates: start: 201208, end: 201212
  2. LEVETIRACETAM [Concomitant]
  3. DECADRON [Concomitant]
  4. MICARDIS [Concomitant]
  5. PANTOPRAZOLE [Concomitant]

REACTIONS (9)
  - Mass [Not Recovered/Not Resolved]
  - Nipple disorder [Not Recovered/Not Resolved]
  - Nipple pain [Not Recovered/Not Resolved]
  - Nasopharyngitis [Not Recovered/Not Resolved]
  - Productive cough [Not Recovered/Not Resolved]
  - Sputum abnormal [Not Recovered/Not Resolved]
  - Dysphagia [Not Recovered/Not Resolved]
  - General physical health deterioration [Not Recovered/Not Resolved]
  - Death [Fatal]
